FAERS Safety Report 24757501 (Version 1)
Quarter: 2024Q4

REPORT INFORMATION
  Report Type: Spontaneous
  Country: US (occurrence: US)
  Receive Date: 20241220
  Receipt Date: 20241220
  Transmission Date: 20250114
  Serious: Yes (Death, Other)
  Sender: CHIESI
  Company Number: US-CHIESI-2024CHF08078

PATIENT
  Age: 27 Year
  Sex: Male

DRUGS (2)
  1. METRELEPTIN [Suspect]
     Active Substance: METRELEPTIN
     Indication: Congenital generalised lipodystrophy
     Dosage: UNK
     Dates: start: 2014, end: 2016
  2. INSULIN NOS [Concomitant]
     Active Substance: INSULIN NOS
     Indication: Product used for unknown indication
     Dosage: UNK

REACTIONS (3)
  - Death [Fatal]
  - Treatment noncompliance [Fatal]
  - Depression [Unknown]

NARRATIVE: CASE EVENT DATE: 20140101
